FAERS Safety Report 4707215-3 (Version None)
Quarter: 2005Q3

REPORT INFORMATION
  Report Type: 
  Country: None (occurrence: None)
  Receive Date: 20050701
  Receipt Date: 20050701
  Transmission Date: 20060218
  Serious: Yes (Other)
  Sender: FDA-Public Use
  Company Number: None

PATIENT
  Age: 52 Year
  Sex: Male
  Weight: 104.3273 kg

DRUGS (7)
  1. ZETIA [Suspect]
     Indication: HYPERCHOLESTEROLAEMIA
     Dosage: 10 MG  QD  ORAL
     Route: 048
     Dates: start: 20040501, end: 20040910
  2. PROBENECID [Concomitant]
  3. DILTIAZEM [Concomitant]
  4. METFORMIN [Concomitant]
  5. ALTACE [Concomitant]
  6. ASPIRIN [Concomitant]
  7. LIPITOR [Concomitant]

REACTIONS (5)
  - EYE DISORDER [None]
  - HEADACHE [None]
  - MIGRAINE [None]
  - PARAESTHESIA [None]
  - VISION BLURRED [None]
